FAERS Safety Report 8280856-5 (Version None)
Quarter: 2012Q2

REPORT INFORMATION
  Report Type: 
  Country: None (occurrence: None)
  Receive Date: 20120412
  Receipt Date: 20120406
  Transmission Date: 20120825
  Serious: Yes (Hospitalization)
  Sender: FDA-Public Use
  Company Number: US-ABBOTT-12P-163-0922670-00

PATIENT
  Sex: Male

DRUGS (4)
  1. LETAIRIS [Suspect]
     Indication: HIV INFECTION
  2. LETAIRIS [Suspect]
     Indication: PULMONARY HYPERTENSION
     Dosage: REGIMEN #2
  3. TYVASO [Concomitant]
     Indication: PRODUCT USED FOR UNKNOWN INDICATION
  4. RITONAVIR [Suspect]
     Indication: HIV INFECTION

REACTIONS (4)
  - NAUSEA [None]
  - DIARRHOEA [None]
  - ABDOMINAL DISTENSION [None]
  - VOMITING [None]
